FAERS Safety Report 8853813 (Version 1)
Quarter: 2012Q4

REPORT INFORMATION
  Report Type: Report from Study
  Country: US (occurrence: US)
  Receive Date: 20121022
  Receipt Date: 20121022
  Transmission Date: 20130627
  Serious: Yes (Other)
  Sender: FDA-Public Use
  Company Number: US-JNJFOC-20121007396

PATIENT
  Sex: Male
  Weight: 104.33 kg

DRUGS (7)
  1. REMICADE [Suspect]
     Indication: PSORIATIC ARTHROPATHY
     Dosage: dose was reported as ^4 units^.
     Route: 042
     Dates: start: 201209, end: 201209
  2. HYDROCHLOROTHIAZIDE [Concomitant]
     Indication: BLOOD PRESSURE
     Route: 048
  3. PRILOSEC [Concomitant]
     Indication: GASTROOESOPHAGEAL REFLUX DISEASE
     Route: 048
  4. XANAX [Concomitant]
     Indication: ANXIETY
     Route: 048
  5. VICODIN [Concomitant]
     Indication: PAIN
     Route: 048
  6. PRO AIR [Concomitant]
     Indication: ASTHMA
     Route: 055
  7. ASTHMA NEBULIZER NOS [Concomitant]
     Indication: ASTHMA
     Dosage: 1-2 a week as needed
     Route: 055

REACTIONS (10)
  - Paralysis [Recovered/Resolved]
  - Jaundice [Recovered/Resolved]
  - Sinusitis [Recovered/Resolved]
  - Pyrexia [Recovered/Resolved]
  - Throat tightness [Recovered/Resolved]
  - Back pain [Not Recovered/Not Resolved]
  - Arthralgia [Not Recovered/Not Resolved]
  - Joint swelling [Not Recovered/Not Resolved]
  - Rash [Recovered/Resolved]
  - Flushing [Recovered/Resolved]
